FAERS Safety Report 17820461 (Version 1)
Quarter: 2020Q2

REPORT INFORMATION
  Report Type: Spontaneous
  Country: US (occurrence: US)
  Receive Date: 20200525
  Receipt Date: 20200525
  Transmission Date: 20200714
  Serious: No
  Sender: FDA-Public Use
  Company Number: US-JNJFOC-20200504199

PATIENT
  Sex: Female

DRUGS (1)
  1. WOMENS ROGAINE [Suspect]
     Active Substance: MINOXIDIL
     Indication: ALOPECIA
     Dosage: USED THE PRODUCT TWICE A DAY (MORNING AND NIGHT)
     Route: 061
     Dates: start: 20200429, end: 20200430

REACTIONS (4)
  - Application site scab [Unknown]
  - Scab [Unknown]
  - Application site pain [Not Recovered/Not Resolved]
  - Swelling face [Unknown]

NARRATIVE: CASE EVENT DATE: 20200430
